FAERS Safety Report 14922181 (Version 2)
Quarter: 2018Q2

REPORT INFORMATION
  Report Type: Spontaneous
  Country: AU (occurrence: AU)
  Receive Date: 20180522
  Receipt Date: 20180524
  Transmission Date: 20180711
  Serious: Yes (Other)
  Sender: FDA-Public Use
  Company Number: AU-LUPIN EUROPE LIMITED-2017-05145

PATIENT
  Age: 35 Year
  Sex: Female

DRUGS (2)
  1. FLUVOXAMINE [Suspect]
     Active Substance: FLUVOXAMINE
     Indication: PERINATAL DEPRESSION
     Dosage: 50 MG, QD
     Route: 065
  2. QUETIAPINE. [Suspect]
     Active Substance: QUETIAPINE
     Indication: PERINATAL DEPRESSION
     Dosage: 100 MG, QD, NIGHTLY
     Route: 065

REACTIONS (2)
  - Optic neuropathy [Unknown]
  - Angle closure glaucoma [Recovering/Resolving]
